FAERS Safety Report 4915664-3 (Version None)
Quarter: 2006Q1

REPORT INFORMATION
  Report Type: 
  Country: None (occurrence: None)
  Receive Date: 20060214
  Receipt Date: 20060206
  Transmission Date: 20060701
  Serious: Yes (Other)
  Sender: FDA-Public Use
  Company Number: 2005014990

PATIENT
  Sex: Male
  Weight: 76.6579 kg

DRUGS (12)
  1. NEURONTIN [Suspect]
     Indication: CONVULSION PROPHYLAXIS
     Dosage: 100 MG (100 MG, 1 IN 1 D), ORAL
     Route: 048
     Dates: start: 19990101, end: 20050110
  2. NEURONTIN [Suspect]
     Indication: EPILEPSY
     Dosage: 100 MG (100 MG, 1 IN 1 D), ORAL
     Route: 048
     Dates: start: 19990101, end: 20050110
  3. DILANTIN KAPSEAL [Suspect]
     Indication: CONVULSION PROPHYLAXIS
     Dosage: 300 MG (300 MG, 1 IN 1 D), ORAL
     Route: 048
     Dates: start: 19880101
  4. DILANTIN KAPSEAL [Suspect]
     Indication: EPILEPSY
     Dosage: 300 MG (300 MG, 1 IN 1 D), ORAL
     Route: 048
     Dates: start: 19880101
  5. WATER (WATER) [Suspect]
     Indication: ILL-DEFINED DISORDER
  6. CARBAMAZEPINE [Suspect]
     Indication: CONVULSION
     Dates: start: 19990101
  7. TRILEPTAL [Suspect]
     Indication: CONVULSION PROPHYLAXIS
     Dates: end: 20030101
  8. TRILEPTAL [Suspect]
     Indication: EPILEPSY
     Dates: end: 20030101
  9. PHENOBARBITAL TAB [Suspect]
     Indication: CONVULSION PROPHYLAXIS
     Dates: start: 19960101
  10. PHENOBARBITAL TAB [Suspect]
     Indication: EPILEPSY
     Dates: start: 19960101
  11. NORTRIPTYLINE HCL [Concomitant]
  12. BENADRYL [Concomitant]

REACTIONS (31)
  - ALOPECIA [None]
  - ARTHRITIS [None]
  - BRONCHITIS CHRONIC [None]
  - CONDITION AGGRAVATED [None]
  - CONVULSION [None]
  - DRUG INEFFECTIVE [None]
  - DRUG INTERACTION [None]
  - DRUG LEVEL FLUCTUATING [None]
  - DRUG LEVEL INCREASED [None]
  - EMOTIONAL DISORDER [None]
  - EYE MOVEMENT DISORDER [None]
  - FEELING ABNORMAL [None]
  - FOOT DEFORMITY [None]
  - HAEMORRHOIDS [None]
  - HEPATITIS A [None]
  - HEPATITIS B [None]
  - HEPATITIS C [None]
  - INFLUENZA [None]
  - INSOMNIA [None]
  - IRRITABILITY [None]
  - LUNG INFECTION [None]
  - NEUROPATHY PERIPHERAL [None]
  - PAIN IN EXTREMITY [None]
  - PHARMACEUTICAL PRODUCT COMPLAINT [None]
  - PNEUMONIA [None]
  - RASH [None]
  - SLEEP DISORDER [None]
  - SOMNOLENCE [None]
  - VISION BLURRED [None]
  - WATER POLLUTION [None]
  - WEIGHT DECREASED [None]
